FAERS Safety Report 5804759-8 (Version None)
Quarter: 2008Q3

REPORT INFORMATION
  Report Type: 
  Country: None (occurrence: None)
  Receive Date: 20080709
  Receipt Date: 20080702
  Transmission Date: 20090109
  Serious: Yes (Other)
  Sender: FDA-Public Use
  Company Number: HQWYE102309AUG04

PATIENT
  Sex: Female
  Weight: 65.38 kg

DRUGS (4)
  1. PREMPRO [Suspect]
  2. PROVERA [Suspect]
  3. CLIMARA [Suspect]
  4. PREMARIN [Suspect]

REACTIONS (1)
  - BREAST CANCER METASTATIC [None]
